FAERS Safety Report 15284782 (Version 1)
Quarter: 2018Q3

REPORT INFORMATION
  Report Type: Spontaneous
  Country: US (occurrence: US)
  Receive Date: 20180801
  Receipt Date: 20180801
  Transmission Date: 20181010
  Serious: No
  Sender: FDA-Public Use
  Company Number: None

PATIENT
  Age: 66 Year
  Sex: Male
  Weight: 65 kg

DRUGS (1)
  1. SPIRONOLACTONE. [Suspect]
     Active Substance: SPIRONOLACTONE
     Indication: ASCITES
     Dosage: ?          OTHER FREQUENCY:AM;?
     Route: 048
     Dates: start: 20171114, end: 20180717

REACTIONS (2)
  - Gynaecomastia [None]
  - Breast tenderness [None]

NARRATIVE: CASE EVENT DATE: 20180717
